FAERS Safety Report 16334829 (Version 1)
Quarter: 2019Q2

REPORT INFORMATION
  Report Type: Spontaneous
  Country: DE (occurrence: DE)
  Receive Date: 20190520
  Receipt Date: 20190520
  Transmission Date: 20190711
  Serious: Yes (Hospitalization)
  Sender: FDA-Public Use
  Company Number: DE-ELI_LILLY_AND_COMPANY-DE201905006919

PATIENT
  Age: 53 Year
  Sex: Male

DRUGS (18)
  1. LEPONEX [Interacting]
     Active Substance: CLOZAPINE
     Dosage: 62.5 MG, DAILY
     Dates: start: 20090831, end: 20090831
  2. LEPONEX [Interacting]
     Active Substance: CLOZAPINE
     Dosage: 200 MG, DAILY
     Dates: start: 20090904, end: 20090906
  3. SERDOLECT [Concomitant]
     Active Substance: SERTINDOLE
     Dosage: 4 MG, DAILY
     Dates: start: 20090918, end: 20090923
  4. LEPONEX [Interacting]
     Active Substance: CLOZAPINE
     Indication: PRODUCT USED FOR UNKNOWN INDICATION
     Dosage: 12.5 MG, DAILY
     Route: 065
     Dates: start: 20090828, end: 20090828
  5. CIPRAMIL [CITALOPRAM HYDROCHLORIDE] [Concomitant]
     Active Substance: CITALOPRAM HYDROCHLORIDE
     Dates: start: 20090807, end: 20090906
  6. ZYPREXA [Interacting]
     Active Substance: OLANZAPINE
     Dosage: 30 MG, DAILY
     Route: 065
     Dates: start: 20090826, end: 20090830
  7. SERDOLECT [Concomitant]
     Active Substance: SERTINDOLE
     Dates: start: 20090924
  8. ZYPREXA [Interacting]
     Active Substance: OLANZAPINE
     Dosage: 20 MG, DAILY
     Route: 065
     Dates: start: 20090831, end: 20090902
  9. ZYPREXA [Interacting]
     Active Substance: OLANZAPINE
     Dosage: 10 MG, DAILY
     Route: 065
     Dates: start: 20090903, end: 20090906
  10. LEPONEX [Interacting]
     Active Substance: CLOZAPINE
     Dosage: 37.5 MG, DAILY
     Dates: start: 20090829, end: 20090830
  11. LEPONEX [Interacting]
     Active Substance: CLOZAPINE
     Dosage: 150 MG, DAILY
     Dates: start: 20090903
  12. LEPONEX [Interacting]
     Active Substance: CLOZAPINE
     Dosage: 25 MG, DAILY
     Dates: start: 20090921, end: 20090925
  13. ZYPREXA [Interacting]
     Active Substance: OLANZAPINE
     Dosage: 20 MG, DAILY
     Route: 065
     Dates: start: 20090820, end: 20090825
  14. ATOSIL [PROMETHAZINE HYDROCHLORIDE] [Interacting]
     Active Substance: PROMETHAZINE HYDROCHLORIDE
     Indication: PRODUCT USED FOR UNKNOWN INDICATION
     Route: 065
     Dates: start: 20090810, end: 20090906
  15. ZYPREXA [Suspect]
     Active Substance: OLANZAPINE
     Indication: PRODUCT USED FOR UNKNOWN INDICATION
     Dosage: 10 MG, DAILY
     Route: 065
     Dates: start: 20090817, end: 20090819
  16. LEPONEX [Interacting]
     Active Substance: CLOZAPINE
     Dosage: 100 MG, DAILY
     Dates: start: 20090902
  17. LEPONEX [Interacting]
     Active Substance: CLOZAPINE
     Dosage: 75 MG, DAILY
     Dates: start: 20090907, end: 20090917
  18. LEPONEX [Interacting]
     Active Substance: CLOZAPINE
     Dosage: 50 MG, DAILY
     Dates: start: 20090918, end: 20090920

REACTIONS (2)
  - Drug interaction [Unknown]
  - Epilepsy [Recovered/Resolved]

NARRATIVE: CASE EVENT DATE: 20090906
